FAERS Safety Report 18951914 (Version 1)
Quarter: 2021Q1

REPORT INFORMATION
  Report Type: Spontaneous
  Country: AU (occurrence: AU)
  Receive Date: 20210301
  Receipt Date: 20210301
  Transmission Date: 20210420
  Serious: Yes (Other)
  Sender: FDA-Public Use
  Company Number: AU-EPICPHARMA-AU-2021EPCLIT00187

PATIENT

DRUGS (5)
  1. CYPROTERONE [Suspect]
     Active Substance: CYPROTERONE
     Indication: TRANSGENDER HORMONAL THERAPY
     Route: 065
  2. CABERGOLINE. [Interacting]
     Active Substance: CABERGOLINE
     Indication: HYPERPROLACTINAEMIA
     Route: 065
  3. CABERGOLINE. [Interacting]
     Active Substance: CABERGOLINE
     Indication: PROLACTIN-PRODUCING PITUITARY TUMOUR
  4. ESTRADIOL. [Suspect]
     Active Substance: ESTRADIOL
     Indication: TRANSGENDER HORMONAL THERAPY
     Route: 061
  5. CYPROTERONE\ETHINYL ESTRADIOL [Suspect]
     Active Substance: CYPROTERONE\ETHINYL ESTRADIOL
     Indication: TRANSGENDER HORMONAL THERAPY
     Route: 065

REACTIONS (4)
  - Product use in unapproved indication [Unknown]
  - Hyperprolactinaemia [Recovered/Resolved]
  - Prolactin-producing pituitary tumour [Recovered/Resolved]
  - Galactorrhoea [Recovered/Resolved]
